FAERS Safety Report 11771427 (Version 1)
Quarter: 2015Q4

REPORT INFORMATION
  Report Type: Spontaneous
  Country: US (occurrence: None)
  Receive Date: 20151123
  Receipt Date: 20151123
  Transmission Date: 20160304
  Serious: No
  Sender: FDA-Public Use
  Company Number: None

PATIENT
  Age: 61 Year
  Sex: Female
  Weight: 90.72 kg

DRUGS (1)
  1. CIPROFLOXACIN. [Suspect]
     Active Substance: CIPROFLOXACIN
     Indication: URINARY TRACT INFECTION
     Dosage: EVERY 12 HOURS
     Route: 048
     Dates: start: 20151115, end: 20151117

REACTIONS (2)
  - Tinnitus [None]
  - Middle insomnia [None]

NARRATIVE: CASE EVENT DATE: 20151115
